FAERS Safety Report 25675946 (Version 1)
Quarter: 2025Q3

REPORT INFORMATION
  Report Type: Spontaneous
  Country: US (occurrence: None)
  Receive Date: 20250812
  Receipt Date: 20250812
  Transmission Date: 20251020
  Serious: Yes (Life-Threatening, Hospitalization, Disabling)
  Sender: FDA-CTU
  Company Number: None

PATIENT
  Age: 56 Year
  Sex: Female
  Weight: 56.7 kg

DRUGS (6)
  1. RYSTIGGO [Suspect]
     Active Substance: ROZANOLIXIZUMAB-NOLI
     Indication: Myasthenia gravis
     Route: 042
     Dates: start: 20250512, end: 20250512
  2. PREDNISONE [Concomitant]
     Active Substance: PREDNISONE
  3. PREGABALIN [Concomitant]
     Active Substance: PREGABALIN
  4. RIZATRIPTAN [Concomitant]
     Active Substance: RIZATRIPTAN
  5. ONDANSETRON [Concomitant]
     Active Substance: ONDANSETRON
  6. LIDOCAINE PATCH [Concomitant]
     Active Substance: LIDOCAINE

REACTIONS (3)
  - Meningitis aseptic [None]
  - Hypoacusis [None]
  - Visual impairment [None]

NARRATIVE: CASE EVENT DATE: 20250512
